FAERS Safety Report 5368149-7 (Version None)
Quarter: 2007Q2

REPORT INFORMATION
  Report Type: 
  Country: None (occurrence: None)
  Receive Date: 20070620
  Receipt Date: 20070604
  Transmission Date: 20071010
  Serious: Yes (Hospitalization, Other)
  Sender: FDA-Public Use
  Company Number: 07-001247

PATIENT
  Age: 65 Year
  Sex: Male

DRUGS (3)
  1. ERYC [Suspect]
     Indication: PNEUMONIA
     Dosage: ORAL
     Route: 048
  2. LOVASTATIN [Suspect]
     Indication: BLOOD CHOLESTEROL INCREASED
     Dosage: 20 MG, TID, ORAL
     Route: 048
  3. ASPIRIN [Concomitant]

REACTIONS (3)
  - DRUG INTERACTION [None]
  - DRUG LEVEL INCREASED [None]
  - RHABDOMYOLYSIS [None]
